FAERS Safety Report 6628877-X (Version None)
Quarter: 2010Q1

REPORT INFORMATION
  Report Type: 
  Country: None (occurrence: None)
  Receive Date: 20100311
  Receipt Date: 20100303
  Transmission Date: 20100710
  Serious: Yes (Other)
  Sender: FDA-Public Use
  Company Number: GXKR2010DE02493

PATIENT
  Sex: Male
  Weight: 73 kg

DRUGS (5)
  1. METFORMIN HEXAL (NGX) [Suspect]
     Dosage: 850 MG, UNK
     Route: 048
  2. RAMIPRIL [Concomitant]
     Dosage: 2.5 MG, QD
     Route: 048
  3. CLOPIDOGREL [Concomitant]
     Dosage: 37.5 MG, QD
     Route: 048
  4. PRAVASTATIN [Concomitant]
     Dosage: 40 MG, QD
     Route: 048
  5. METOPROLOL SUCCINATE [Concomitant]
     Dosage: UNK
     Route: 048

REACTIONS (4)
  - ABDOMINAL PAIN UPPER [None]
  - ANGINA PECTORIS [None]
  - DYSPNOEA [None]
  - SLEEP DISORDER [None]
